FAERS Safety Report 5567643-3 (Version None)
Quarter: 2007Q4

REPORT INFORMATION
  Report Type: 
  Country: None (occurrence: None)
  Receive Date: 20071219
  Receipt Date: 20071207
  Transmission Date: 20080405
  Serious: Yes (Other)
  Sender: FDA-Public Use
  Company Number: US-PFIZER INC-2007104119

PATIENT
  Sex: Female
  Weight: 56.7 kg

DRUGS (2)
  1. CHANTIX [Suspect]
     Indication: SMOKING CESSATION THERAPY
     Route: 048
     Dates: start: 20071116, end: 20071118
  2. LORATADINE [Concomitant]
     Route: 048

REACTIONS (3)
  - ABASIA [None]
  - BRONCHIAL OBSTRUCTION [None]
  - DYSPNOEA [None]
